FAERS Safety Report 8517015-4 (Version None)
Quarter: 2012Q3

REPORT INFORMATION
  Report Type: 
  Country: None (occurrence: None)
  Receive Date: 20120718
  Receipt Date: 20120709
  Transmission Date: 20120928
  Serious: Yes (Hospitalization)
  Sender: FDA-Public Use
  Company Number: ZA-NOVOPROD-348455

PATIENT
  Age: 58 Year
  Sex: Male

DRUGS (9)
  1. VICTOZA [Suspect]
     Indication: TYPE 2 DIABETES MELLITUS
     Dosage: 1.2 MG, QD
     Route: 058
     Dates: start: 20110601
  2. HUMALOG [Concomitant]
     Dosage: 40-50 UNITS, TID
     Route: 058
  3. PURICOS [Concomitant]
     Dosage: 600 MG, QD
     Route: 048
  4. VICTOZA [Suspect]
     Dosage: UNK
     Route: 058
     Dates: end: 20120601
  5. PLAVIX [Concomitant]
     Dosage: UNKNOWN
  6. GLUCOPHAGE [Concomitant]
     Dosage: 2.5 MG, QD
     Route: 048
  7. LASIX [Concomitant]
     Dosage: 40 MG, QD
     Route: 048
  8. ASPIRIN [Concomitant]
     Dosage: 81 MG, QD
     Route: 048
  9. FENOFIBRATE [Concomitant]
     Dosage: 200 MG, QD
     Route: 048

REACTIONS (1)
  - CORONARY ARTERY DISEASE [None]
